FAERS Safety Report 15717462 (Version 1)
Quarter: 2018Q4

REPORT INFORMATION
  Report Type: Spontaneous
  Country: US (occurrence: US)
  Receive Date: 20181213
  Receipt Date: 20181213
  Transmission Date: 20190205
  Serious: No
  Sender: FDA-Public Use
  Company Number: US-ASTELLAS-2018US010908

PATIENT
  Age: 79 Year
  Sex: Female
  Weight: 59 kg

DRUGS (1)
  1. TARCEVA [Suspect]
     Active Substance: ERLOTINIB HYDROCHLORIDE
     Indication: LUNG NEOPLASM MALIGNANT
     Route: 048
     Dates: start: 20171114

REACTIONS (8)
  - Diarrhoea [Recovered/Resolved]
  - Skin atrophy [Recovering/Resolving]
  - Rash [Recovering/Resolving]
  - Nasal discomfort [Recovering/Resolving]
  - Oral pain [Recovering/Resolving]
  - Feeling abnormal [Recovering/Resolving]
  - Eyelid irritation [Recovering/Resolving]
  - Dry skin [Recovering/Resolving]

NARRATIVE: CASE EVENT DATE: 20171209
